FAERS Safety Report 18486001 (Version 1)
Quarter: 2020Q4

REPORT INFORMATION
  Report Type: Spontaneous
  Country: CA (occurrence: CA)
  Receive Date: 20201110
  Receipt Date: 20201110
  Transmission Date: 20210114
  Serious: Yes (Other)
  Sender: FDA-Public Use
  Company Number: CA-LUPIN PHARMACEUTICALS INC.-2020-08394

PATIENT
  Age: 25 Year
  Sex: Female

DRUGS (9)
  1. ARANESP [Suspect]
     Active Substance: DARBEPOETIN ALFA
     Indication: ANAEMIA
     Dosage: 150 MICROGRAM (TWICE WEEKLY)
     Route: 065
  2. METHYLPREDNISOLONE. [Suspect]
     Active Substance: METHYLPREDNISOLONE
     Indication: PROPHYLAXIS
     Dosage: 250 MILLIGRAM, UNK
     Route: 042
  3. IRON [Suspect]
     Active Substance: IRON
     Indication: ANAEMIA
     Dosage: UNK
     Route: 065
  4. ERYTHROPOIETIN [Suspect]
     Active Substance: ERYTHROPOIETIN
     Indication: ANAEMIA
     Dosage: UNK
     Route: 042
  5. EPREX [Suspect]
     Active Substance: ERYTHROPOIETIN
     Indication: ANAEMIA
     Dosage: 40000 INTERNATIONAL UNIT (WEEKLY.)
     Route: 065
  6. RITUXIMAB. [Suspect]
     Active Substance: RITUXIMAB
     Indication: PROPHYLAXIS
     Dosage: 500 MILLIGRAM (ONE DOSE) ((APPROVED FOR TWO WEEKLY DOSES))
     Route: 042
  7. HYDROXYUREA. [Suspect]
     Active Substance: HYDROXYUREA
     Indication: SICKLE CELL DISEASE
     Dosage: UNK
     Route: 065
  8. IMMUNOGLOBULINS NOS [Suspect]
     Active Substance: IMMUNE GLOBULIN NOS
     Indication: PROPHYLAXIS
     Dosage: UNK 0.4 G/KG
     Route: 042
  9. VITAMIN B12 [Suspect]
     Active Substance: CYANOCOBALAMIN
     Indication: VITAMIN B12 DEFICIENCY
     Dosage: UNK
     Route: 065

REACTIONS (2)
  - Exposure during pregnancy [Unknown]
  - Premature delivery [Unknown]
